FAERS Safety Report 23650310 (Version 2)
Quarter: 2024Q3

REPORT INFORMATION
  Report Type: Spontaneous
  Country: US (occurrence: US)
  Receive Date: 20240320
  Receipt Date: 20240820
  Transmission Date: 20241016
  Serious: No
  Sender: ROCHE
  Company Number: US-ROCHE-3475330

PATIENT
  Sex: Female
  Weight: 87.09 kg

DRUGS (3)
  1. VABYSMO [Suspect]
     Active Substance: FARICIMAB\FARICIMAB-SVOA
     Indication: Macular degeneration
     Dosage: YES
     Route: 031
     Dates: start: 2023
  2. EYLEA [Concomitant]
     Active Substance: AFLIBERCEPT
     Indication: Macular degeneration
     Route: 031
     Dates: start: 20231030
  3. TRIAMCINOLONE [Concomitant]
     Active Substance: TRIAMCINOLONE
     Indication: Joint injection
     Route: 014
     Dates: start: 2023

REACTIONS (1)
  - Proteinuria [Not Recovered/Not Resolved]

NARRATIVE: CASE EVENT DATE: 20231207
